FAERS Safety Report 6571896-2 (Version None)
Quarter: 2010Q1

REPORT INFORMATION
  Report Type: 
  Country: None (occurrence: None)
  Receive Date: 20100205
  Receipt Date: 20100118
  Transmission Date: 20100710
  Serious: Yes (Hospitalization)
  Sender: FDA-Public Use
  Company Number: DE-BRISTOL-MYERS SQUIBB COMPANY-14957849

PATIENT
  Age: 59 Year
  Sex: Male
  Weight: 117 kg

DRUGS (19)
  1. CISPLATIN [Suspect]
     Indication: NON-SMALL CELL LUNG CANCER
     Dosage: 17NOV09:75 MG/M2, LAST DOSE (ACTUAL DOSE 171 MG): (08DEC09)
     Route: 042
     Dates: start: 20091117
  2. CETUXIMAB [Suspect]
     Indication: NON-SMALL CELL LUNG CANCER
     Dosage: 400MG/M2,DAY1,CYCLE 1:17NOV09(1DAY);456MG(250 MG/M2)WEEKLY(IV)LAST DOSE: 29DEC09
     Route: 042
     Dates: start: 20091117, end: 20091117
  3. ALIMTA [Suspect]
     Indication: NON-SMALL CELL LUNG CANCER
     Dosage: 17NOV09:500 MG/M2; LAST DOSE (ACTUAL DOSE: 912 MG): 29DEC09
     Route: 042
     Dates: start: 20091117
  4. LAFOL [Concomitant]
     Dates: start: 20091111
  5. VITAMIN B-12 [Concomitant]
     Dates: start: 20091117
  6. ANTIHISTAMINE NOS [Concomitant]
     Dates: start: 20091117
  7. ESIDRIX [Concomitant]
  8. DELIX [Concomitant]
  9. PENTAERYTHRITOL TETRANITRATE [Concomitant]
  10. AMLODIPINE [Concomitant]
  11. BELOC-ZOK [Concomitant]
  12. TOREM [Concomitant]
  13. SIMVASTATIN [Concomitant]
     Indication: PROPHYLAXIS
  14. ARCOXIA [Concomitant]
     Indication: PROPHYLAXIS
  15. ROCORNAL [Concomitant]
     Dates: start: 20091213
  16. DEXAMETHASONE [Concomitant]
     Dates: start: 20091116
  17. ZOFRAN [Concomitant]
     Indication: PROPHYLAXIS
     Dates: start: 20091229, end: 20091229
  18. ZANTAC [Concomitant]
     Indication: PROPHYLAXIS
     Dates: start: 20091117, end: 20091117
  19. FENISTIL [Concomitant]
     Indication: PROPHYLAXIS
     Dates: start: 20091117, end: 20091117

REACTIONS (2)
  - APPENDICITIS [None]
  - ATRIAL FLUTTER [None]
